FAERS Safety Report 9502573 (Version 2)
Quarter: 2013Q3

REPORT INFORMATION
  Report Type: Spontaneous
  Country: JP (occurrence: JP)
  Receive Date: 20130906
  Receipt Date: 20130920
  Transmission Date: 20140515
  Serious: Yes (Hospitalization)
  Sender: FDA-Public Use
  Company Number: JP-AMGEN-JPNSP2013062502

PATIENT
  Age: 72 Year
  Sex: Female
  Weight: 42 kg

DRUGS (3)
  1. PRALIA [Suspect]
     Indication: OSTEOPOROSIS
     Dosage: 60 MG, UNK
     Route: 058
     Dates: start: 20130617, end: 20130617
  2. EDIROL [Suspect]
     Indication: PROPHYLAXIS
     Route: 048
     Dates: start: 20130617
  3. ASPARA-CA [Suspect]
     Indication: PROPHYLAXIS
     Route: 048
     Dates: start: 20130617

REACTIONS (1)
  - Hypercalcaemia [Recovered/Resolved]
